FAERS Safety Report 8777013 (Version 1)
Quarter: 2012Q4

REPORT INFORMATION
  Report Type: 
  Country: US (occurrence: US)
  Receive Date: 20120911
  Receipt Date: 20120911
  Transmission Date: 20130627
  Serious: Yes (Hospitalization)
  Sender: FDA-Public Use
  Company Number: US-BAYER-2012-093653

PATIENT
  Age: 38 Year
  Sex: Female
  Weight: 85.71 kg

DRUGS (13)
  1. YAZ [Suspect]
     Dosage: UNK
  2. BEYAZ [Suspect]
     Dosage: UNK
  3. GIANVI [Suspect]
     Dosage: UNK
  4. BUPROPION HYDROCHLORIDE [Concomitant]
     Dosage: 200 mg, BID
     Route: 048
  5. INDERAL [Concomitant]
     Dosage: UNK daily
     Route: 048
  6. ABILIFY [Concomitant]
     Dosage: 30 mg, HS
     Route: 048
  7. LEVOTHYROXINE SODIUM [Concomitant]
     Dosage: UNK
     Route: 048
  8. ADDERALL [Concomitant]
     Dosage: 20 mg, BID
     Route: 048
  9. CLOMIPRAMINE [Concomitant]
     Dosage: 25 mg,  1 capsule QD
     Route: 048
  10. AMPHETAMINE SALTS [Concomitant]
     Dosage: 30 mg, 1 capsule QD
     Route: 048
  11. BUPROPION [Concomitant]
     Dosage: 150 mg, QD
     Route: 048
  12. LEVOTHYROXINE [Concomitant]
     Dosage: 50 ?g, QD
     Route: 048
  13. PROPRANOLOL [Concomitant]
     Dosage: 20 mg, 1 tablet every day PRN
     Route: 048

REACTIONS (1)
  - Pulmonary embolism [None]
